FAERS Safety Report 4621912-X (Version None)
Quarter: 2005Q1

REPORT INFORMATION
  Report Type: 
  Country: None (occurrence: None)
  Receive Date: 20050329
  Receipt Date: 20050318
  Transmission Date: 20050727
  Serious: Yes (Other)
  Sender: FDA-Public Use
  Company Number: NL-GLAXOSMITHKLINE-B0375836A

PATIENT
  Age: 51 Year
  Sex: Male

DRUGS (1)
  1. ATOVAQUONE + PROGUANIL HYDROCHLORIDE [Suspect]
     Indication: PROPHYLAXIS
     Route: 065
     Dates: start: 20031001

REACTIONS (1)
  - LIVER FUNCTION TEST ABNORMAL [None]
